FAERS Safety Report 7617740-3 (Version None)
Quarter: 2011Q3

REPORT INFORMATION
  Report Type: 
  Country: None (occurrence: None)
  Receive Date: 20110718
  Receipt Date: 20110705
  Transmission Date: 20111222
  Serious: Yes (Hospitalization)
  Sender: FDA-Public Use
  Company Number: CA-UCBSA-031200

PATIENT
  Sex: Female
  Weight: 71.5 kg

DRUGS (4)
  1. CERTOLIZUMAB PEGOL [Suspect]
     Indication: CROHN'S DISEASE
     Dosage: NBR OF DOSES 03, AT 0, 2 AND 4 WEEKS
     Route: 058
     Dates: start: 20080311, end: 20080401
  2. PEGTRON [Concomitant]
     Indication: CROHN'S DISEASE
  3. CERTOLIZUMAB PEGOL [Suspect]
     Route: 058
     Dates: start: 20080401
  4. INFLIXIMAB [Concomitant]
     Indication: CROHN'S DISEASE

REACTIONS (1)
  - ABSCESS [None]
